FAERS Safety Report 9571226 (Version 2)
Quarter: 2013Q4

REPORT INFORMATION
  Report Type: Report from Study
  Country: FR (occurrence: FR)
  Receive Date: 20131001
  Receipt Date: 20131001
  Transmission Date: 20140711
  Serious: Yes (Hospitalization)
  Sender: FDA-Public Use
  Company Number: FR-SA-200828861GPV

PATIENT
  Age: 61 Year
  Sex: Female
  Weight: 55 kg

DRUGS (11)
  1. CAMPATH [Suspect]
     Indication: CHRONIC LYMPHOCYTIC LEUKAEMIA
     Dosage: 30 MG, QD,FROM D1 TO D3/CYCLE (CYCLE 1)
     Route: 058
     Dates: start: 20080514
  2. CAMPATH [Suspect]
     Indication: CHRONIC LYMPHOCYTIC LEUKAEMIA
     Dosage: 30 MG, QD,FROM D1 TO D3/CYCLE (CYCLE 2)
     Route: 058
     Dates: start: 200806
  3. CAMPATH [Suspect]
     Indication: CHRONIC LYMPHOCYTIC LEUKAEMIA
     Dosage: 30 MG, UNKFROM D1 TO D3/CYCLE (CYCLE 3)
     Route: 058
     Dates: start: 20080708, end: 20080710
  4. FLUDARA [Suspect]
     Indication: CHRONIC LYMPHOCYTIC LEUKAEMIA
     Dosage: 10 MG, QD, FROM D1 TO D3/CYCLE (CYCLE 1)
     Route: 048
     Dates: start: 20080514
  5. FLUDARA [Suspect]
     Indication: CHRONIC LYMPHOCYTIC LEUKAEMIA
     Dosage: 10 MG, QD,FROM D1 TO D3/CYCLE (CYCLE 2)
     Route: 048
     Dates: start: 200806
  6. FLUDARA [Suspect]
     Indication: CHRONIC LYMPHOCYTIC LEUKAEMIA
     Dosage: 30 MG, QD,FROM D1 TO D3/CYCLE (CYCLE 3)
     Route: 048
     Dates: start: 20080708, end: 20080710
  7. ENDOXAN [Suspect]
     Indication: CHRONIC LYMPHOCYTIC LEUKAEMIA
     Dosage: 50 MG,QD,FROM D1 TO D3/CYCLE (CYCLE 1)
     Route: 048
     Dates: start: 20080514
  8. ENDOXAN [Suspect]
     Indication: CHRONIC LYMPHOCYTIC LEUKAEMIA
     Dosage: 50 MG, QD,FROM D1 TO D3/CYCLE (CYCLE 2)
     Route: 048
     Dates: start: 200806
  9. ENDOXAN [Suspect]
     Indication: CHRONIC LYMPHOCYTIC LEUKAEMIA
     Dosage: 50 MG, QD,FROM D1 TO D3/CYCLE (CYCLE 3)
     Route: 048
     Dates: start: 20080708, end: 20080710
  10. SULFAMETHOXAZOLE/TRIMETHOPRIM [Concomitant]
     Indication: PRODUCT USED FOR UNKNOWN INDICATION
     Dosage: 2 DF, BID
     Route: 048
     Dates: start: 20080514
  11. VALACICLOVIR HYDROCHLORIDE [Concomitant]
     Indication: PRODUCT USED FOR UNKNOWN INDICATION
     Dosage: 2 DF, BID
     Route: 048
     Dates: start: 20080514

REACTIONS (4)
  - Febrile bone marrow aplasia [Recovered/Resolved]
  - General physical health deterioration [Recovered/Resolved]
  - Pleural effusion [Recovered/Resolved]
  - Hypotension [Recovered/Resolved]
